FAERS Safety Report 6831003-5 (Version None)
Quarter: 2010Q3

REPORT INFORMATION
  Report Type: 
  Country: None (occurrence: None)
  Receive Date: 20100712
  Receipt Date: 20100303
  Transmission Date: 20110219
  Serious: Yes (Hospitalization)
  Sender: FDA-Public Use
  Company Number: AT-NAPPMUNDI-DEU-2010-0005973

PATIENT
  Age: 45 Year
  Sex: Male

DRUGS (2)
  1. HYDAL RETARD 8 MG-KAPSELN [Suspect]
     Indication: PRODUCT USED FOR UNKNOWN INDICATION
     Dosage: 320 MG, SINGLE
     Dates: start: 20090919, end: 20090919
  2. ALCOHOL [Suspect]
     Indication: ALCOHOL ABUSE
     Dosage: UNK
     Dates: start: 20090919, end: 20090919

REACTIONS (6)
  - EXTRASYSTOLES [None]
  - HYPOKALAEMIA [None]
  - HYPOTENSION [None]
  - MULTIPLE DRUG OVERDOSE INTENTIONAL [None]
  - RESPIRATORY FAILURE [None]
  - SOMNOLENCE [None]
